FAERS Safety Report 16931297 (Version 3)
Quarter: 2019Q4

REPORT INFORMATION
  Report Type: Report from Study
  Country: BR (occurrence: BR)
  Receive Date: 20191017
  Receipt Date: 20191029
  Transmission Date: 20200122
  Serious: Yes (Death, Hospitalization, Other)
  Sender: FDA-Public Use
  Company Number: BR-ROCHE-2014144

PATIENT
  Age: 67 Year
  Sex: Male
  Weight: 78 kg

DRUGS (6)
  1. CODEIN [Concomitant]
     Active Substance: CODEINE
     Indication: COUGH
  2. DIOVAN [Concomitant]
     Active Substance: VALSARTAN
  3. ESBRIET [Suspect]
     Active Substance: PIRFENIDONE
     Indication: IDIOPATHIC PULMONARY FIBROSIS
     Dosage: MAXIMUM DOSE
     Route: 065
     Dates: start: 201701
  4. TRAYENTA [Concomitant]
     Active Substance: LINAGLIPTIN
  5. ATENOLOL. [Concomitant]
     Active Substance: ATENOLOL
  6. ESBRIET [Suspect]
     Active Substance: PIRFENIDONE
     Route: 065

REACTIONS (17)
  - Decreased appetite [Not Recovered/Not Resolved]
  - Idiopathic pulmonary fibrosis [Fatal]
  - Gait inability [Unknown]
  - Dependence on oxygen therapy [Not Recovered/Not Resolved]
  - Depressed mood [Not Recovered/Not Resolved]
  - Drug ineffective [Unknown]
  - Malaise [Unknown]
  - Fatigue [Not Recovered/Not Resolved]
  - Lung disorder [Unknown]
  - Cough [Unknown]
  - Skin discolouration [Unknown]
  - Asthenia [Not Recovered/Not Resolved]
  - Dyspnoea [Unknown]
  - Blood sodium increased [Unknown]
  - Nail discolouration [Unknown]
  - Weight decreased [Not Recovered/Not Resolved]
  - No adverse event [Unknown]

NARRATIVE: CASE EVENT DATE: 201907
